FAERS Safety Report 22289326 (Version 1)
Quarter: 2023Q2

REPORT INFORMATION
  Report Type: Report from Study
  Country: CA (occurrence: CA)
  Receive Date: 20230505
  Receipt Date: 20230505
  Transmission Date: 20230721
  Serious: Yes (Other)
  Sender: FDA-Public Use
  Company Number: CA-SAMSUNG BIOEPIS-SB-2023-11932

PATIENT
  Age: 63 Year
  Sex: Male

DRUGS (1)
  1. RENFLEXIS [Suspect]
     Active Substance: INFLIXIMAB-ABDA
     Indication: Crohn^s disease
     Route: 042
     Dates: start: 20211124

REACTIONS (6)
  - Nausea [Unknown]
  - Cold sweat [Unknown]
  - Loss of consciousness [Unknown]
  - Fall [Unknown]
  - Contusion [Unknown]
  - Skin laceration [Unknown]

NARRATIVE: CASE EVENT DATE: 20230420
